FAERS Safety Report 6336193-9 (Version None)
Quarter: 2009Q3

REPORT INFORMATION
  Report Type: 
  Country: None (occurrence: None)
  Receive Date: 20090831
  Receipt Date: 20090831
  Transmission Date: 20100115
  Serious: Yes (Other)
  Sender: FDA-Public Use
  Company Number: None

PATIENT
  Sex: Female
  Weight: 71.6683 kg

DRUGS (1)
  1. AZITHROMYCIN [Suspect]
     Indication: BRONCHITIS
     Dosage: TOOK 2 PACKS (12 PILLS)
     Dates: start: 20090515, end: 20090605

REACTIONS (4)
  - AGEUSIA [None]
  - ANOSMIA [None]
  - COUGH [None]
  - STOMATITIS [None]
